FAERS Safety Report 5644583-2 (Version None)
Quarter: 2008Q1

REPORT INFORMATION
  Report Type: 
  Country: None (occurrence: None)
  Receive Date: 20080229
  Receipt Date: 20070405
  Transmission Date: 20080703
  Serious: No
  Sender: FDA-Public Use
  Company Number: A0644078A

PATIENT
  Age: 72 Year
  Sex: Female

DRUGS (12)
  1. VALTREX [Suspect]
     Indication: HERPES ZOSTER
     Dosage: 1G THREE TIMES PER DAY
     Route: 048
  2. SINGULAIR [Concomitant]
  3. ENAPRIL [Concomitant]
  4. PREDNISONE TAB [Concomitant]
  5. ZYRTEC [Concomitant]
  6. MUCINEX [Concomitant]
  7. ADVAIR DISKUS 100/50 [Concomitant]
  8. NASONEX [Concomitant]
  9. PRILOSEC [Concomitant]
  10. ARICEPT [Concomitant]
  11. BACTRIM [Concomitant]
  12. HYDROMET [Concomitant]

REACTIONS (1)
  - THERAPEUTIC RESPONSE DELAYED [None]
